FAERS Safety Report 8883046 (Version 1)
Quarter: 2012Q4

REPORT INFORMATION
  Report Type: Report from Study
  Country: CA (occurrence: CA)
  Receive Date: 20121104
  Receipt Date: 20121104
  Transmission Date: 20130627
  Serious: Yes (Other)
  Sender: FDA-Public Use
  Company Number: CA-JNJFOC-20120813934

PATIENT
  Sex: Female
  Weight: 80 kg

DRUGS (3)
  1. REMICADE [Suspect]
     Indication: CROHN^S DISEASE
     Route: 042
     Dates: start: 2008
  2. TYLENOL [Concomitant]
     Indication: PREMEDICATION
     Route: 048
  3. SOLUCORTEF [Concomitant]
     Indication: PREMEDICATION
     Route: 042

REACTIONS (2)
  - Anxiety [Recovering/Resolving]
  - Exposure during pregnancy [Recovered/Resolved]
